FAERS Safety Report 6422538-8 (Version None)
Quarter: 2009Q4

REPORT INFORMATION
  Report Type: 
  Country: None (occurrence: None)
  Receive Date: 20091102
  Receipt Date: 20091021
  Transmission Date: 20100525
  Serious: Yes (Death)
  Sender: FDA-Public Use
  Company Number: FR-BIOGENIDEC-2009BI034085

PATIENT
  Age: 45 Year
  Sex: Female

DRUGS (5)
  1. TYSABRI [Suspect]
     Indication: RELAPSING-REMITTING MULTIPLE SCLEROSIS
     Route: 042
     Dates: start: 20070606, end: 20091002
  2. NEXIUM [Concomitant]
     Indication: GASTROINTESTINAL DISORDER
     Route: 048
     Dates: end: 20091001
  3. DEPAKINE CHRONO [Concomitant]
     Indication: EPILEPSY
     Dates: start: 20070108, end: 20091001
  4. NEURONTIN [Concomitant]
     Indication: PAIN IN EXTREMITY
     Dates: end: 20091001
  5. RIVOTRIL [Concomitant]
     Indication: PAIN IN EXTREMITY
     Dates: end: 20091001

REACTIONS (6)
  - ALCOHOLISM [None]
  - DEATH [None]
  - DEPRESSION [None]
  - HYPERTENSION [None]
  - MULTIPLE SCLEROSIS RELAPSE [None]
  - NAUSEA [None]
